FAERS Safety Report 9312420 (Version 2)
Quarter: 2013Q2

REPORT INFORMATION
  Report Type: Spontaneous
  Country: US (occurrence: None)
  Receive Date: 20130507
  Receipt Date: 20130507
  Transmission Date: 20140414
  Serious: Yes (Disabling, Other)
  Sender: FDA-Public Use
  Company Number: 2013035705

PATIENT
  Age: 46 Year
  Sex: Female
  Weight: 68.04 kg

DRUGS (12)
  1. HIZENTRA [Suspect]
     Indication: HYPOGAMMAGLOBULINAEMIA
     Dosage: 1X / WEEK , ??-AUG-2012; ON SATURDAYS SUBCUTANEOUS
     Route: 058
     Dates: start: 201208
  2. DIGOXIN [Concomitant]
  3. SYNTHROID (LEVOTHYROXINE SODIUM) [Concomitant]
  4. WELLBUTRIN [Concomitant]
  5. PAXIL [Concomitant]
  6. KLONOPIN (CLONAZEPAM) (TABLETS) [Concomitant]
  7. TRAZODONE (TRAZODONE) [Concomitant]
  8. SINGULAIR [Concomitant]
  9. PERCOCET [Concomitant]
  10. BYSTOLIC [Concomitant]
  11. ANTIBIOTIC [Concomitant]
  12. SAPHRIS [Concomitant]

REACTIONS (8)
  - Lymphoma [None]
  - Local swelling [None]
  - Mastication disorder [None]
  - Jaw disorder [None]
  - Pain [None]
  - Leukaemia [None]
  - Cardiac disorder [None]
  - Lymphadenopathy [None]
